FAERS Safety Report 17767166 (Version 2)
Quarter: 2020Q3

REPORT INFORMATION
  Report Type: Spontaneous
  Country: JP (occurrence: JP)
  Receive Date: 20200511
  Receipt Date: 20200708
  Transmission Date: 20201102
  Serious: Yes (Life-Threatening)
  Sender: FDA-Public Use
  Company Number: JP-PFIZER INC-2020185185

PATIENT
  Age: 68 Year
  Sex: Male
  Weight: 43 kg

DRUGS (11)
  1. ROPION [Concomitant]
     Active Substance: FLURBIPROFEN AXETIL
     Dosage: UNK
     Dates: start: 20200306, end: 20200315
  2. GASCON [Concomitant]
     Active Substance: DIMETHICONE
     Dosage: 240 MG, UNK
  3. VFEND [Suspect]
     Active Substance: VORICONAZOLE
     Dosage: 150 MG, 2X/DAY
     Route: 041
     Dates: start: 20200314, end: 20200316
  4. MOSAPRIDE CITRATE [Concomitant]
     Active Substance: MOSAPRIDE CITRATE
     Dosage: UNK
  5. FUNGUARD [Concomitant]
     Active Substance: MICAFUNGIN SODIUM
     Indication: SYSTEMIC CANDIDA
     Dosage: UNK
     Dates: start: 20200309, end: 20200313
  6. VFEND [Suspect]
     Active Substance: VORICONAZOLE
     Indication: SYSTEMIC CANDIDA
     Dosage: 200 MG, 2X/DAY
     Route: 041
     Dates: start: 20200313, end: 20200314
  7. AMVALO [Concomitant]
     Active Substance: AMLODIPINE BESYLATE\VALSARTAN
     Dosage: 1 DF, UNK
  8. DAIKENCHUTO [Concomitant]
     Active Substance: HERBALS
     Dosage: UNK
  9. TAZOPIPE [Concomitant]
     Active Substance: PIPERACILLIN SODIUM\TAZOBACTAM SODIUM
     Dosage: UNK
     Dates: start: 20200309, end: 20200312
  10. MEROPENEM. [Concomitant]
     Active Substance: MEROPENEM
     Dosage: UNK
     Dates: start: 20200312, end: 20200324
  11. RECOMODULIN [Concomitant]
     Active Substance: THROMBOMODULIN ALFA
     Dosage: UNK
     Dates: start: 20200309, end: 20200315

REACTIONS (2)
  - Off label use [Unknown]
  - Interstitial lung disease [Recovered/Resolved]

NARRATIVE: CASE EVENT DATE: 20200313
